FAERS Safety Report 19380551 (Version 1)
Quarter: 2021Q2

REPORT INFORMATION
  Report Type: Spontaneous
  Country: FR (occurrence: FR)
  Receive Date: 20210607
  Receipt Date: 20210607
  Transmission Date: 20210717
  Serious: Yes (Other)
  Sender: FDA-Public Use
  Company Number: FR-MYLANLABS-2021M1032639

PATIENT
  Age: 13 Year
  Sex: Female
  Weight: 37 kg

DRUGS (6)
  1. ZELITREX [Concomitant]
     Active Substance: VALACYCLOVIR HYDROCHLORIDE
     Indication: INFECTION PROPHYLAXIS
     Dosage: 3 DOSAGE FORM, QD
     Route: 048
     Dates: start: 20200131
  2. CELLCEPT [Concomitant]
     Active Substance: MYCOPHENOLATE MOFETIL\MYCOPHENOLATE MOFETIL HYDROCHLORIDE
     Indication: TRANSPLANT
     Dosage: 400 MILLIGRAM, QD
     Route: 048
     Dates: start: 202004
  3. BACTRIM [Concomitant]
     Active Substance: SULFAMETHOXAZOLE\TRIMETHOPRIM
     Indication: INFECTION PROPHYLAXIS
     Dosage: 2400 MILLIGRAM, QD
     Route: 048
     Dates: start: 202005
  4. BICARBONATE DE SODIUM [Concomitant]
     Active Substance: SODIUM BICARBONATE
     Dosage: 2 GRAM, QD
     Route: 048
     Dates: start: 2016, end: 202012
  5. EVEROLIMUS. [Suspect]
     Active Substance: EVEROLIMUS
     Indication: TRANSPLANT
     Dosage: 5 MILLIGRAM, QD
     Route: 048
     Dates: start: 20201202, end: 20201205
  6. CICLOSPORINE [Concomitant]
     Active Substance: CYCLOSPORINE
     Indication: TRANSPLANT
     Dosage: 140 MILLIGRAM, QD
     Route: 048
     Dates: start: 202004

REACTIONS (3)
  - Headache [Recovered/Resolved]
  - Chest discomfort [Recovered/Resolved]
  - Epistaxis [Recovered/Resolved]

NARRATIVE: CASE EVENT DATE: 20201202
